FAERS Safety Report 4913701-3 (Version None)
Quarter: 2006Q1

REPORT INFORMATION
  Report Type: 
  Country: None (occurrence: None)
  Receive Date: 20060210
  Receipt Date: 20060207
  Transmission Date: 20060701
  Serious: Yes (Other)
  Sender: FDA-Public Use
  Company Number: A0568193A

PATIENT
  Age: 40 Year
  Sex: Male
  Weight: 116.5744 kg

DRUGS (3)
  1. PAXIL [Suspect]
     Indication: DEPRESSION
     Dosage: PER DAY ORAL
     Route: 048
     Dates: start: 19950101, end: 20031106
  2. ERYTHROMYCIN [Concomitant]
  3. LORATADINE [Concomitant]

REACTIONS (18)
  - AGITATION [None]
  - AKATHISIA [None]
  - ANIMAL BITE [None]
  - ATELECTASIS [None]
  - DRUG WITHDRAWAL SYNDROME [None]
  - ECCHYMOSIS [None]
  - FALL [None]
  - HOSTILITY [None]
  - INJURY [None]
  - MOOD ALTERED [None]
  - MUSCLE SPASMS [None]
  - PAIN IN EXTREMITY [None]
  - ROAD TRAFFIC ACCIDENT [None]
  - SINUS TACHYCARDIA [None]
  - SOMNOLENCE [None]
  - SUICIDAL IDEATION [None]
  - SUICIDE ATTEMPT [None]
  - TEARFULNESS [None]
